FAERS Safety Report 15726921 (Version 1)
Quarter: 2018Q4

REPORT INFORMATION
  Report Type: Spontaneous
  Country: US (occurrence: US)
  Receive Date: 20181217
  Receipt Date: 20181217
  Transmission Date: 20190205
  Serious: No
  Sender: FDA-Public Use
  Company Number: US-STRIDES ARCOLAB LIMITED-2018SP009657

PATIENT
  Age: 59 Year
  Sex: Female

DRUGS (1)
  1. CALCITRIOL. [Suspect]
     Active Substance: CALCITRIOL
     Indication: PRODUCT USED FOR UNKNOWN INDICATION
     Dosage: 0.5 MCG, THREE CAPSULES ONCE A DAY
     Route: 048
     Dates: start: 201703, end: 201811

REACTIONS (2)
  - Bone pain [Recovered/Resolved]
  - Myalgia [Recovered/Resolved]
